FAERS Safety Report 19881504 (Version 3)
Quarter: 2022Q1

REPORT INFORMATION
  Report Type: Spontaneous
  Country: CA (occurrence: None)
  Receive Date: 20210925
  Receipt Date: 20220105
  Transmission Date: 20220424
  Serious: Yes (Hospitalization, Other)
  Sender: FDA-Public Use
  Company Number: CA-ROCHE-2918605

PATIENT
  Sex: Female

DRUGS (1)
  1. OCREVUS [Suspect]
     Active Substance: OCRELIZUMAB
     Indication: Multiple sclerosis
     Route: 042
     Dates: start: 20180212

REACTIONS (5)
  - Gastrointestinal disorder [Unknown]
  - Breast disorder [Unknown]
  - Weight decreased [Not Recovered/Not Resolved]
  - VIth nerve paralysis [Recovered/Resolved]
  - Cerebrovascular accident [Recovered/Resolved]
